FAERS Safety Report 20033338 (Version 1)
Quarter: 2021Q4

REPORT INFORMATION
  Report Type: Spontaneous
  Country: CN (occurrence: None)
  Receive Date: 20211104
  Receipt Date: 20211104
  Transmission Date: 20220303
  Serious: Yes (Other)
  Sender: FDA-Public Use
  Company Number: CN-ROCHE-2949820

PATIENT
  Age: 51 Year
  Sex: Female
  Weight: 62 kg

DRUGS (4)
  1. HERCEPTIN [Suspect]
     Active Substance: TRASTUZUMAB
     Indication: Invasive breast carcinoma
     Dosage: SUBSEQUENT DOSES ON 02/NOV/2020, 23/NOV/2020, 14/DEC/2020, 04/JAN/2021 AND 25/JAN/2021
     Route: 065
     Dates: start: 20201012
  2. PERJETA [Suspect]
     Active Substance: PERTUZUMAB
     Indication: Invasive breast carcinoma
     Dosage: SUBSEQUENT DOSES ON 02/NOV/2020, 23/NOV/2020, 14/DEC/2020, 04/JAN/2021 AND 25/JAN/2021
     Route: 065
     Dates: start: 20201012
  3. DOCETAXEL [Concomitant]
     Active Substance: DOCETAXEL
     Indication: Invasive breast carcinoma
     Dosage: SUBSEQUENT DOSES ON 02/NOV/2020, 23/NOV/2020, 14/DEC/2020, 04/JAN/2021 AND 25/JAN/2021
     Route: 041
     Dates: start: 20201012
  4. CARBOPLATIN [Concomitant]
     Active Substance: CARBOPLATIN
     Indication: Invasive breast carcinoma
     Dosage: SUBSEQUENT DOSES ON 02/NOV/2020, 23/NOV/2020, 14/DEC/2020, 04/JAN/2021 AND 25/JAN/2021
     Route: 041
     Dates: start: 20201012

REACTIONS (1)
  - Myelosuppression [Unknown]
